FAERS Safety Report 5276076-9 (Version None)
Quarter: 2007Q1

REPORT INFORMATION
  Report Type: 
  Country: None (occurrence: None)
  Receive Date: 20070326
  Receipt Date: 20070323
  Transmission Date: 20070707
  Serious: Yes (Death, Hospitalization)
  Sender: FDA-Public Use
  Company Number: US-BRISTOL-MYERS SQUIBB COMPANY-13725411

PATIENT
  Age: 57 Year
  Sex: Male
  Weight: 63 kg

DRUGS (3)
  1. CETUXIMAB [Suspect]
     Indication: SQUAMOUS CELL CARCINOMA
     Dates: start: 20060424, end: 20060424
  2. CISPLATIN [Suspect]
     Indication: SQUAMOUS CELL CARCINOMA
  3. RADIATION THERAPY [Suspect]
     Indication: SQUAMOUS CELL CARCINOMA
     Dates: start: 20060426, end: 20060426

REACTIONS (3)
  - LOBAR PNEUMONIA [None]
  - MULTI-ORGAN FAILURE [None]
  - VASCULAR OCCLUSION [None]
